FAERS Safety Report 5958390-4 (Version None)
Quarter: 2008Q4

REPORT INFORMATION
  Report Type: 
  Country: None (occurrence: None)
  Receive Date: 20081117
  Receipt Date: 20081104
  Transmission Date: 20090506
  Serious: Yes (Other)
  Sender: FDA-Public Use
  Company Number: DSU-2008-00731

PATIENT
  Age: 58 Year
  Sex: Female
  Weight: 122.4712 kg

DRUGS (8)
  1. BENICAR HCT [Suspect]
     Indication: HYPERTENSION
     Dosage: 40 / 12.5 MG (QD), PER ORAL; ABOUT ONE AND A HALF YEARS AGO
     Route: 048
  2. LYRICA [Suspect]
     Indication: FIBROMYALGIA
     Dosage: 150 MG (75 MG, BID)
     Dates: start: 20070501
  3. LYRICA [Suspect]
     Indication: PAIN
     Dosage: 150 MG (75 MG, BID)
     Dates: start: 20070501
  4. GAS ANESTHESIA [Suspect]
     Indication: GENERAL ANAESTHESIA
  5. ZOLOFT [Suspect]
  6. ALBUTEROL [Concomitant]
  7. IBUPROFEN TABLETS [Concomitant]
  8. MULTIVITAMIN [Concomitant]

REACTIONS (15)
  - BACTERIURIA [None]
  - BLOOD PRESSURE INCREASED [None]
  - BLOOD URINE PRESENT [None]
  - CARBON DIOXIDE INCREASED [None]
  - HYPOTENSION [None]
  - LYMPHOCYTE COUNT DECREASED [None]
  - NOCTURIA [None]
  - POST PROCEDURAL COMPLICATION [None]
  - PROCEDURAL COMPLICATION [None]
  - PROCEDURAL HYPOTENSION [None]
  - RED CELL DISTRIBUTION WIDTH INCREASED [None]
  - ROTATOR CUFF SYNDROME [None]
  - SOMNOLENCE [None]
  - THYROXINE FREE DECREASED [None]
  - WHITE BLOOD CELLS URINE POSITIVE [None]
